FAERS Safety Report 4590260-9 (Version None)
Quarter: 2005Q1

REPORT INFORMATION
  Report Type: 
  Country: None (occurrence: None)
  Receive Date: 20050215
  Receipt Date: 20050201
  Transmission Date: 20050727
  Serious: Yes (Other)
  Sender: FDA-Public Use
  Company Number: FRWYE393302FEB05

PATIENT
  Age: 10 Year
  Sex: Male

DRUGS (1)
  1. REFACTO [Suspect]
     Indication: FACTOR VIII DEFICIENCY
     Dosage: 1000 IU 2X PER 1 WK
     Route: 042
     Dates: end: 20050101

REACTIONS (1)
  - COAGULATION FACTOR VIII LEVEL DECREASED [None]
